FAERS Safety Report 6618822 (Version 2)
Quarter: 2016Q4

REPORT INFORMATION
  Report Type: Spontaneous
  Country: US (occurrence: US)
  Receive Date: 20080418
  Receipt Date: 20161014
  Transmission Date: 20170207
  Serious: Yes (Life-Threatening, Hospitalization, Other)
  Sender: FDA-Public Use
  Company Number: US-PFIZER INC-2008032785

PATIENT
  Age: 27 Year
  Sex: Male

DRUGS (1)
  1. SOLU-MEDROL [Suspect]
     Active Substance: METHYLPREDNISOLONE SODIUM SUCCINATE
     Indication: PHAEOCHROMOCYTOMA
     Dosage: 1.5 G, UNK
     Route: 042

REACTIONS (7)
  - Arthralgia [Unknown]
  - Musculoskeletal chest pain [Unknown]
  - Heart rate increased [Unknown]
  - Vomiting [Unknown]
  - Phaeochromocytoma crisis [Unknown]
  - Hypertensive crisis [Unknown]
  - Nausea [Unknown]
